FAERS Safety Report 8613848-4 (Version None)
Quarter: 2012Q3

REPORT INFORMATION
  Report Type: 
  Country: None (occurrence: None)
  Receive Date: 20120823
  Receipt Date: 20120809
  Transmission Date: 20120928
  Serious: Yes (Hospitalization)
  Sender: FDA-Public Use
  Company Number: JP-009507513-1208JPN001643

PATIENT

DRUGS (6)
  1. LOXONIN [Concomitant]
     Dosage: UNK
     Route: 048
     Dates: start: 20120625, end: 20120705
  2. GARENOXACIN MESYLATE [Suspect]
     Dosage: 400 MG, QD
     Route: 048
     Dates: start: 20120705, end: 20120705
  3. GARENOXACIN MESYLATE [Suspect]
     Indication: LYMPHADENITIS
     Dosage: 400 MG, QD
     Route: 048
     Dates: start: 20120618, end: 20120624
  4. FLOMOX [Concomitant]
     Indication: LYMPHADENITIS
     Dosage: UNK
     Route: 048
     Dates: start: 20120625, end: 20120701
  5. FAMOTIDINE [Suspect]
     Indication: PROPHYLAXIS AGAINST GASTROINTESTINAL ULCER
     Dosage: 20 MG, BID
     Route: 048
     Dates: start: 20120705, end: 20120705
  6. PREDNISOLONE [Concomitant]
     Indication: LYMPHADENITIS
     Dosage: UNK
     Route: 048
     Dates: start: 20120625, end: 20120705

REACTIONS (3)
  - STOMATITIS [None]
  - OFF LABEL USE [None]
  - ECZEMA [None]
